FAERS Safety Report 6187666-3 (Version None)
Quarter: 2009Q2

REPORT INFORMATION
  Report Type: 
  Country: None (occurrence: None)
  Receive Date: 20090511
  Receipt Date: 20090502
  Transmission Date: 20091009
  Serious: Yes (Other)
  Sender: FDA-Public Use
  Company Number: AE-2009-033

PATIENT
  Sex: Male

DRUGS (1)
  1. METFORMIN HCL [Suspect]

REACTIONS (3)
  - DISORIENTATION [None]
  - HYPERHIDROSIS [None]
  - SPEECH DISORDER [None]
